FAERS Safety Report 8438361-9 (Version None)
Quarter: 2012Q2

REPORT INFORMATION
  Report Type: 
  Country: None (occurrence: None)
  Receive Date: 20120614
  Receipt Date: 20120608
  Transmission Date: 20120825
  Serious: Yes (Hospitalization, Other)
  Sender: FDA-Public Use
  Company Number: US-MERCK-1204USA01794

PATIENT
  Age: 56 Year
  Sex: Female

DRUGS (7)
  1. FOSAMAX [Suspect]
     Route: 048
     Dates: start: 20021201
  2. LISINOPRIL [Concomitant]
     Indication: HYPERTENSION
     Route: 065
     Dates: start: 19970101, end: 20120430
  3. CALCIUM (UNSPECIFIED) [Concomitant]
     Route: 065
     Dates: start: 19940101
  4. VITAMINS (UNSPECIFIED) [Concomitant]
     Route: 065
     Dates: start: 19940101
  5. FOSAMAX [Suspect]
     Indication: OSTEOPOROSIS PROPHYLAXIS
     Route: 048
     Dates: start: 19980101, end: 20020101
  6. HORMONES (UNSPECIFIED) [Concomitant]
     Route: 065
     Dates: start: 19970101, end: 20080101
  7. ASPIRIN [Concomitant]
     Indication: HYPERTENSION
     Route: 065
     Dates: start: 19970101, end: 20120430

REACTIONS (10)
  - ANXIETY [None]
  - SHOCK HAEMORRHAGIC [None]
  - BLOOD CHOLESTEROL INCREASED [None]
  - LOW TURNOVER OSTEOPATHY [None]
  - FEMUR FRACTURE [None]
  - ANGER [None]
  - DEPRESSION [None]
  - ADVERSE EVENT [None]
  - TOOTH DISORDER [None]
  - TOOTH FRACTURE [None]
